FAERS Safety Report 4677722-0 (Version None)
Quarter: 2005Q2

REPORT INFORMATION
  Report Type: 
  Country: None (occurrence: None)
  Receive Date: 20050531
  Receipt Date: 20050309
  Transmission Date: 20051028
  Serious: Yes (Death, Other)
  Sender: FDA-Public Use
  Company Number: PHBS2005JP03447

PATIENT
  Age: 60 Year
  Sex: Male

DRUGS (3)
  1. PREDNISOLONE [Suspect]
     Indication: STEM CELL TRANSPLANT
     Dosage: 10 MG/D
     Route: 065
  2. CYCLOSPORINE [Suspect]
     Indication: STEM CELL TRANSPLANT
     Dosage: 60 MG/D
     Route: 065
  3. AMPHOTERICIN B [Suspect]
     Indication: ASPERGILLOSIS
     Dosage: 50 MG, Q48H
     Route: 042

REACTIONS (10)
  - BLOOD BETA-D-GLUCAN INCREASED [None]
  - CYSTITIS HAEMORRHAGIC [None]
  - OSTEONECROSIS [None]
  - PLATELET COUNT DECREASED [None]
  - PYREXIA [None]
  - RENAL FAILURE [None]
  - SINUSITIS ASPERGILLUS [None]
  - SURGERY [None]
  - TOOTHACHE [None]
  - WHITE BLOOD CELL COUNT DECREASED [None]
